FAERS Safety Report 10254262 (Version 3)
Quarter: 2014Q3

REPORT INFORMATION
  Report Type: Spontaneous
  Country: DE (occurrence: DE)
  Receive Date: 20140624
  Receipt Date: 20140805
  Transmission Date: 20150326
  Serious: Yes (Other)
  Sender: FDA-Public Use
  Company Number: DE-ROCHE-1420564

PATIENT
  Age: 72 Year
  Sex: Female
  Weight: 92.6 kg

DRUGS (4)
  1. PERJETA [Suspect]
     Active Substance: PERTUZUMAB
     Indication: BREAST CANCER METASTATIC
     Route: 042
     Dates: start: 20140328, end: 20140605
  2. HERCEPTIN [Suspect]
     Active Substance: TRASTUZUMAB
     Indication: BREAST CANCER METASTATIC
     Dosage: INITAL DOSE
     Route: 042
     Dates: start: 20140328, end: 20140328
  3. DOCETAXEL [Suspect]
     Active Substance: DOCETAXEL
     Indication: BREAST CANCER METASTATIC
     Route: 042
     Dates: start: 20140328, end: 20140605
  4. HERCEPTIN [Suspect]
     Active Substance: TRASTUZUMAB
     Dosage: SINCE THE 2ND CYCLE
     Route: 042
     Dates: end: 20140605

REACTIONS (9)
  - Onychomadesis [Recovering/Resolving]
  - Wound infection [Unknown]
  - Weight increased [Recovering/Resolving]
  - Oedema [Recovering/Resolving]
  - Erythema [Unknown]
  - Palmar-plantar erythrodysaesthesia syndrome [Recovering/Resolving]
  - Fat necrosis [Unknown]
  - Generalised oedema [Recovering/Resolving]
  - Skin disorder [Not Recovered/Not Resolved]

NARRATIVE: CASE EVENT DATE: 20140605
